FAERS Safety Report 14283838 (Version 1)
Quarter: 2017Q4

REPORT INFORMATION
  Report Type: Spontaneous
  Country: US (occurrence: US)
  Receive Date: 20171213
  Receipt Date: 20171213
  Transmission Date: 20180321
  Serious: Yes (Life-Threatening, Other)
  Sender: FDA-Public Use
  Company Number: None

PATIENT
  Age: 48 Year
  Sex: Female
  Weight: 67.6 kg

DRUGS (3)
  1. NORMAL SALINE [Concomitant]
     Active Substance: SODIUM CHLORIDE
  2. OXALIPLATIN. [Suspect]
     Active Substance: OXALIPLATIN
     Indication: CHEMOTHERAPY
     Dosage: 2 HOURS   230MG INTRAVENOUS (NOT OTHERWISE SPECIFIED)
     Route: 042
  3. AVASTIN [Concomitant]
     Active Substance: BEVACIZUMAB

REACTIONS (8)
  - Rash [None]
  - Malaise [None]
  - Dizziness [None]
  - Chills [None]
  - Nausea [None]
  - Blepharospasm [None]
  - Muscle spasms [None]
  - Throat tightness [None]

NARRATIVE: CASE EVENT DATE: 20171212
